FAERS Safety Report 7930479-X (Version None)
Quarter: 2011Q4

REPORT INFORMATION
  Report Type: 
  Country: None (occurrence: None)
  Receive Date: 20111117
  Receipt Date: 20111104
  Transmission Date: 20120403
  Serious: Yes (Other)
  Sender: FDA-Public Use
  Company Number: 2011-01249

PATIENT
  Age: 70 Year
  Sex: Female

DRUGS (3)
  1. LISINOPRIL [Suspect]
     Indication: HYPERTENSION
  2. LOSARTAN POTASSIUM [Suspect]
     Indication: HYPERTENSION
     Dosage: 12.5 MG (12.5 MG) ; 25 MG (25 MG) ; 50 MG (50 MG)
  3. VERAPAMIL [Suspect]
     Indication: ATRIAL FIBRILLATION

REACTIONS (15)
  - ABDOMINAL PAIN [None]
  - ATRIAL FIBRILLATION [None]
  - URINARY INCONTINENCE [None]
  - DRY EYE [None]
  - COUGH [None]
  - MUSCULOSKELETAL PAIN [None]
  - PAIN [None]
  - DRY MOUTH [None]
  - DIARRHOEA [None]
  - SLEEP DISORDER [None]
  - FIBROMYALGIA [None]
  - ARTHRALGIA [None]
  - PHARYNGEAL OEDEMA [None]
  - RASH ERYTHEMATOUS [None]
  - DECREASED APPETITE [None]
